FAERS Safety Report 9201831 (Version 1)
Quarter: 2013Q2

REPORT INFORMATION
  Report Type: Spontaneous
  Country: BR (occurrence: BR)
  Receive Date: 20130401
  Receipt Date: 20130401
  Transmission Date: 20140414
  Serious: Yes (Death, Other)
  Sender: FDA-Public Use
  Company Number: BR-ASTRAZENECA-2013SE20588

PATIENT
  Age: 77 Year
  Sex: Female

DRUGS (5)
  1. SELOZOK [Suspect]
     Route: 048
     Dates: start: 20130212, end: 20130214
  2. RIVAROXABAN [Concomitant]
     Route: 048
     Dates: start: 20130212, end: 20130214
  3. AMIODARONE [Concomitant]
     Route: 042
     Dates: start: 20130212, end: 20130214
  4. LOSARTAN [Concomitant]
     Route: 048
     Dates: start: 20130212, end: 20130214
  5. SPIRONOLACTONE [Concomitant]
     Route: 048
     Dates: start: 20130212, end: 20130214

REACTIONS (2)
  - Cardiac arrest [Fatal]
  - Hypotension [Unknown]
